FAERS Safety Report 4382140-9 (Version None)
Quarter: 2004Q2

REPORT INFORMATION
  Report Type: 
  Country: None (occurrence: None)
  Receive Date: 20040617
  Receipt Date: 20030625
  Transmission Date: 20050107
  Serious: Yes (Other)
  Sender: FDA-Public Use
  Company Number: PHEH2003US05357

PATIENT
  Age: 39 Year
  Sex: Male

DRUGS (2)
  1. CAFERGOT [Suspect]
     Dosage: 1, QD, ORAL
     Route: 048
  2. VERAPAMIL [Concomitant]

REACTIONS (2)
  - PERIPHERAL ISCHAEMIA [None]
  - PERIPHERAL OCCLUSIVE DISEASE [None]
